FAERS Safety Report 12240649 (Version 1)
Quarter: 2016Q2

REPORT INFORMATION
  Report Type: Spontaneous
  Country: US (occurrence: US)
  Receive Date: 20160406
  Receipt Date: 20160406
  Transmission Date: 20160815
  Serious: No
  Sender: FDA-Public Use
  Company Number: US-ASTRAZENECA-2016SE33923

PATIENT
  Sex: Female

DRUGS (1)
  1. DALIRESP [Suspect]
     Active Substance: ROFLUMILAST
     Route: 065

REACTIONS (13)
  - Anxiety [Unknown]
  - Disability [Unknown]
  - Pyrexia [Unknown]
  - Crying [Unknown]
  - Adverse event [Unknown]
  - Hallucination [Unknown]
  - Swelling [Unknown]
  - Tenderness [Unknown]
  - Nausea [Unknown]
  - Headache [Unknown]
  - Influenza like illness [Unknown]
  - Diarrhoea [Unknown]
  - Back pain [Unknown]
